FAERS Safety Report 7808658-1 (Version None)
Quarter: 2011Q4

REPORT INFORMATION
  Report Type: 
  Country: None (occurrence: None)
  Receive Date: 20111012
  Receipt Date: 20111005
  Transmission Date: 20120403
  Serious: Yes (Hospitalization)
  Sender: FDA-Public Use
  Company Number: US-CELGENEUS-163-20785-11100683

PATIENT
  Sex: Male

DRUGS (6)
  1. AMITRIPTYLINE HCL [Concomitant]
     Route: 065
  2. DEXAMETHASONE [Concomitant]
     Route: 065
  3. THALOMID [Suspect]
     Dosage: 200 MILLIGRAM
     Route: 048
     Dates: start: 20110126, end: 20110101
  4. TYLENOL-500 [Concomitant]
     Route: 065
  5. LISINOPRIL [Concomitant]
     Route: 065
  6. LORAZEPAM [Concomitant]
     Route: 065

REACTIONS (1)
  - RENAL DISORDER [None]
